FAERS Safety Report 24268318 (Version 2)
Quarter: 2024Q3

REPORT INFORMATION
  Report Type: Spontaneous
  Country: US (occurrence: US)
  Receive Date: 20240830
  Receipt Date: 20240904
  Transmission Date: 20241017
  Serious: No
  Sender: PFIZER
  Company Number: US-PFIZER INC-PV202400112875

PATIENT
  Age: 63 Year
  Sex: Male

DRUGS (1)
  1. PAXLOVID [Suspect]
     Active Substance: NIRMATRELVIR\RITONAVIR
     Indication: COVID-19 treatment
     Dosage: [NIRMATRELVIR 300 MG]/[RITONAVIR 100 MG]; 2X/DAY; ONCE IN MORNING, ONCE AT NIGHT
     Route: 048
     Dates: start: 20240827

REACTIONS (5)
  - Headache [Unknown]
  - Hyperhidrosis [Not Recovered/Not Resolved]
  - Chest pain [Unknown]
  - Feeling hot [Unknown]
  - Dysgeusia [Unknown]

NARRATIVE: CASE EVENT DATE: 20240828
